FAERS Safety Report 5090145-8 (Version None)
Quarter: 2006Q3

REPORT INFORMATION
  Report Type: 
  Country: None (occurrence: None)
  Receive Date: 20060828
  Receipt Date: 20060816
  Transmission Date: 20061208
  Serious: Yes (Other)
  Sender: FDA-Public Use
  Company Number: CA-BRISTOL-MYERS SQUIBB COMPANY-13480694

PATIENT
  Age: 58 Year
  Sex: Female

DRUGS (1)
  1. CARDIOLITE [Suspect]
     Route: 042
     Dates: start: 20060727, end: 20060727

REACTIONS (6)
  - BACK PAIN [None]
  - CHEST PAIN [None]
  - HYPOAESTHESIA [None]
  - LOSS OF CONSCIOUSNESS [None]
  - MONOPLEGIA [None]
  - MUSCLE SPASMS [None]
